FAERS Safety Report 9433480 (Version 2)
Quarter: 2013Q4

REPORT INFORMATION
  Report Type: Report from Study
  Country: BR (occurrence: BR)
  Receive Date: 20130731
  Receipt Date: 20131031
  Transmission Date: 20140711
  Serious: Yes (Other)
  Sender: FDA-Public Use
  Company Number: BR-ROCHE-1108853

PATIENT
  Age: 65 Year
  Sex: Female
  Weight: 73 kg

DRUGS (3)
  1. MABTHERA [Suspect]
     Indication: RHEUMATOID ARTHRITIS
     Route: 042
     Dates: start: 20100701
  2. METFORMIN [Concomitant]
     Indication: PRODUCT USED FOR UNKNOWN INDICATION
     Route: 065
  3. JANUVIA [Concomitant]

REACTIONS (11)
  - Intervertebral disc protrusion [Not Recovered/Not Resolved]
  - Blood pressure increased [Recovered/Resolved]
  - Sepsis [Not Recovered/Not Resolved]
  - Localised infection [Recovered/Resolved]
  - Local swelling [Recovering/Resolving]
  - Spinal pain [Recovered/Resolved]
  - Swelling [Recovered/Resolved]
  - Insomnia [Recovered/Resolved]
  - Malaise [Recovered/Resolved]
  - Hypoaesthesia [Recovered/Resolved]
  - Spinal column injury [Not Recovered/Not Resolved]
